FAERS Safety Report 10057566 (Version 2)
Quarter: 2014Q2

REPORT INFORMATION
  Report Type: Spontaneous
  Country: US (occurrence: US)
  Receive Date: 20140404
  Receipt Date: 20140409
  Transmission Date: 20141212
  Serious: Yes (Other)
  Sender: FDA-Public Use
  Company Number: PHHY2014US040347

PATIENT
  Age: 78 Year
  Sex: Male

DRUGS (6)
  1. ALISKIREN [Suspect]
     Dosage: 150 MG, DAILY
  2. AMLODIPINE BESILATE,BENAZEPRIL HYDROCHLORIDE [Suspect]
  3. HYDROCHLOROTHIAZIDE [Suspect]
     Dosage: 25 MG, DAILY
  4. CARVEDILOL [Suspect]
     Dosage: 25 MG, UNK
  5. SPIRONOLACTONE [Suspect]
     Dosage: 25 MG, UNK
  6. ROSUVASTATIN [Concomitant]
     Dosage: 40 MG, DAILY

REACTIONS (4)
  - Acute prerenal failure [Unknown]
  - Hyperkalaemia [Recovered/Resolved]
  - Blood pressure decreased [Unknown]
  - Blood pressure inadequately controlled [Unknown]
